FAERS Safety Report 7054758-6 (Version None)
Quarter: 2010Q4

REPORT INFORMATION
  Report Type: 
  Country: None (occurrence: None)
  Receive Date: 20101018
  Receipt Date: 20101004
  Transmission Date: 20110411
  Serious: Yes (Death, Hospitalization, Other)
  Sender: FDA-Public Use
  Company Number: UTC-001513

PATIENT
  Age: 31 Year
  Sex: Male
  Weight: 100.2 kg

DRUGS (7)
  1. TYVASO [Suspect]
     Indication: PULMONARY ARTERIAL HYPERTENSION
     Dosage: 96 MCG (24 MCG,4 IN 1 D),INHALATION
     Route: 055
     Dates: start: 20100201
  2. REVATIO [Suspect]
     Indication: PULMONARY ARTERIAL HYPERTENSION
     Dosage: 60 MG (20 MG,3 IN 1 D),ORAL
     Route: 048
     Dates: start: 20080501
  3. WARFARIN SODIUM [Concomitant]
  4. BUMETANIDE [Concomitant]
  5. DIGOXIN [Concomitant]
  6. POTASSIUM CHLORIDE [Concomitant]
  7. OMEPRAZOLE [Concomitant]

REACTIONS (21)
  - ABDOMINAL PAIN [None]
  - ARTHRALGIA [None]
  - ASCITES [None]
  - ASTHMA [None]
  - BUNDLE BRANCH BLOCK RIGHT [None]
  - CARDIAC FAILURE ACUTE [None]
  - DYSPHONIA [None]
  - DYSURIA [None]
  - HEPATIC CONGESTION [None]
  - HYPOKALAEMIA [None]
  - JOINT SWELLING [None]
  - MYALGIA [None]
  - NAUSEA [None]
  - PULMONARY ARTERIAL HYPERTENSION [None]
  - RHINITIS ALLERGIC [None]
  - SINUS TACHYCARDIA [None]
  - TEMPERATURE INTOLERANCE [None]
  - THIRST [None]
  - TRICUSPID VALVE INCOMPETENCE [None]
  - UPPER RESPIRATORY TRACT INFECTION [None]
  - UPPER-AIRWAY COUGH SYNDROME [None]
